FAERS Safety Report 25048517 (Version 3)
Quarter: 2025Q1

REPORT INFORMATION
  Report Type: Report from Study
  Country: KR (occurrence: KR)
  Receive Date: 20250307
  Receipt Date: 20250324
  Transmission Date: 20250409
  Serious: Yes (Hospitalization)
  Sender: ABBVIE
  Company Number: KR-ABBVIE-6158289

PATIENT
  Age: 61 Year
  Sex: Female
  Weight: 42 kg

DRUGS (21)
  1. RINVOQ [Suspect]
     Active Substance: UPADACITINIB
     Indication: Crohn^s disease
     Dosage: MODIFIED-RELEASE FILM-COATED TABLET
     Route: 048
     Dates: start: 20250219, end: 20250221
  2. RINVOQ [Suspect]
     Active Substance: UPADACITINIB
     Indication: Crohn^s disease
     Dosage: MODIFIED-RELEASE FILM-COATED TABLET
     Route: 048
     Dates: start: 20250225, end: 20250225
  3. Fotagel [Concomitant]
     Indication: Prophylaxis
     Route: 048
     Dates: start: 20250208
  4. ATACAND [Concomitant]
     Active Substance: CANDESARTAN CILEXETIL
     Indication: Hypertension
     Dosage: STRENGTH: 8 MG
     Route: 048
     Dates: start: 20211226
  5. FUSIDATE SODIUM [Concomitant]
     Active Substance: FUSIDATE SODIUM
     Indication: Inflammation
     Dates: start: 20240321
  6. TRAMADOL HYDROCHLORIDE [Concomitant]
     Active Substance: TRAMADOL HYDROCHLORIDE
     Indication: Crohn^s disease
     Route: 048
     Dates: start: 20240510
  7. Melaking pr [Concomitant]
     Indication: Insomnia
     Dosage: STRENGTH: 2MG
     Route: 048
     Dates: start: 20250225
  8. Melaking pr [Concomitant]
     Indication: Insomnia
     Route: 048
     Dates: start: 20250208
  9. LASIX [Concomitant]
     Active Substance: FUROSEMIDE
     Indication: Hypertension
     Route: 048
     Dates: start: 20211226
  10. Norzyme [Concomitant]
     Indication: Crohn^s disease
     Route: 048
     Dates: start: 20240625
  11. ULTRACET [Concomitant]
     Active Substance: ACETAMINOPHEN\TRAMADOL HYDROCHLORIDE
     Indication: Crohn^s disease
     Route: 048
     Dates: start: 20221119
  12. Polybutine [Concomitant]
     Indication: Crohn^s disease
     Route: 048
     Dates: start: 20211012
  13. Feroba you sr [Concomitant]
     Indication: Anaemia prophylaxis
     Route: 048
     Dates: start: 20240320
  14. VENLAFAXINE HYDROCHLORIDE [Concomitant]
     Active Substance: VENLAFAXINE HYDROCHLORIDE
     Indication: Anxiety disorder
     Dosage: STRENGTH: 37.5 MG
     Route: 048
     Dates: start: 20250225
  15. Menoctyl [Concomitant]
     Indication: Crohn^s disease
     Route: 048
     Dates: start: 20241205
  16. ZOLPIDEM TARTRATE [Concomitant]
     Active Substance: ZOLPIDEM TARTRATE
     Indication: Insomnia
     Dosage: STRENGTH: 10MG
     Route: 048
     Dates: start: 20211102
  17. Ramnos [Concomitant]
     Indication: Crohn^s disease
     Route: 048
     Dates: start: 20240318
  18. Setopen [Concomitant]
     Indication: Pyrexia
     Route: 048
     Dates: start: 20250208
  19. Couphshot [Concomitant]
     Indication: Cough
     Route: 048
     Dates: start: 20250228
  20. STELARA [Concomitant]
     Active Substance: USTEKINUMAB
     Indication: Crohn^s disease
     Route: 042
     Dates: start: 20250227, end: 20250227
  21. Sama lidomax [Concomitant]
     Indication: Cutaneous symptom
     Dosage: UNIT DOSE : 1 OTHER(APPLY TO THE SKIN), 20G
     Route: 061
     Dates: start: 20250301

REACTIONS (6)
  - Asthenia [Recovering/Resolving]
  - Vomiting [Recovered/Resolved]
  - Nausea [Recovered/Resolved]
  - Myalgia [Recovered/Resolved]
  - Headache [Recovered/Resolved]
  - Rash [Recovered/Resolved]

NARRATIVE: CASE EVENT DATE: 20250219
